FAERS Safety Report 14267414 (Version 1)
Quarter: 2017Q4

REPORT INFORMATION
  Report Type: Spontaneous
  Country: US (occurrence: US)
  Receive Date: 20171209
  Receipt Date: 20171209
  Transmission Date: 20180321
  Serious: Yes (Disabling)
  Sender: FDA-Public Use
  Company Number: None

PATIENT
  Age: 52 Year
  Sex: Female
  Weight: 78.75 kg

DRUGS (4)
  1. CENTRUM MULTIVITAMIN [Concomitant]
  2. CLONAZEPAM 1MG TABLETS MFG-MYLAN- GENERIC EQUIVALENT FOR KLONOPIN 1MG [Suspect]
     Active Substance: CLONAZEPAM
     Indication: MOVEMENT DISORDER
     Dosage: ?          QUANTITY:60 TABLET(S);?
     Route: 048
     Dates: start: 20171115, end: 20171208
  3. PROAIR INHALER [Concomitant]
     Active Substance: ALBUTEROL SULFATE
  4. IBUPROFEN. [Concomitant]
     Active Substance: IBUPROFEN

REACTIONS (3)
  - Abdominal discomfort [None]
  - Product odour abnormal [None]
  - Throat irritation [None]

NARRATIVE: CASE EVENT DATE: 20171120
